FAERS Safety Report 5379304-4 (Version None)
Quarter: 2007Q3

REPORT INFORMATION
  Report Type: 
  Country: None (occurrence: None)
  Receive Date: 20070705
  Receipt Date: 20070625
  Transmission Date: 20080115
  Serious: Yes (Hospitalization)
  Sender: FDA-Public Use
  Company Number: FR-PFIZER INC-2007052488

PATIENT
  Age: 73 Year
  Sex: Female
  Weight: 111 kg

DRUGS (2)
  1. FELDENE [Suspect]
     Indication: ARTHRITIS
     Dosage: TEXT:1 DF-FREQ:AS NEEDED
     Route: 048
  2. DICLOFENAC [Suspect]
     Indication: ARTHRITIS
     Dosage: TEXT:1 DF-FREQ:AS NEEDED
     Route: 048
     Dates: start: 19991201, end: 20060801

REACTIONS (1)
  - INTERSTITIAL LUNG DISEASE [None]
